FAERS Safety Report 5378701-0 (Version None)
Quarter: 2007Q3

REPORT INFORMATION
  Report Type: 
  Country: None (occurrence: None)
  Receive Date: 20070705
  Receipt Date: 20070627
  Transmission Date: 20080115
  Serious: Yes (Other)
  Sender: FDA-Public Use
  Company Number: A0660330A

PATIENT
  Age: 68 Year
  Sex: Male

DRUGS (3)
  1. AVANDARYL [Suspect]
     Route: 048
  2. POTASSIUM SUPPLEMENTS [Concomitant]
  3. AVAPRO [Concomitant]

REACTIONS (4)
  - HEADACHE [None]
  - HYPOGLYCAEMIA [None]
  - MUSCULAR WEAKNESS [None]
  - MYALGIA [None]
